FAERS Safety Report 10428521 (Version 2)
Quarter: 2014Q4

REPORT INFORMATION
  Report Type: Spontaneous
  Country: DE (occurrence: DE)
  Receive Date: 20140903
  Receipt Date: 20141027
  Transmission Date: 20150528
  Serious: Yes (Other)
  Sender: FDA-Public Use
  Company Number: PHHY2014DE109325

PATIENT
  Age: 51 Year
  Sex: Male

DRUGS (1)
  1. TASIGNA [Suspect]
     Active Substance: NILOTINIB
     Indication: CHRONIC MYELOID LEUKAEMIA
     Route: 065

REACTIONS (7)
  - Intervertebral disc disorder [Unknown]
  - Cervicobrachial syndrome [Unknown]
  - Neck pain [Unknown]
  - Polymyalgia rheumatica [Unknown]
  - Asthenia [Unknown]
  - Musculoskeletal pain [Unknown]
  - Osteoarthritis [Unknown]
